FAERS Safety Report 4990854-2 (Version None)
Quarter: 2006Q2

REPORT INFORMATION
  Report Type: 
  Country: None (occurrence: None)
  Receive Date: 20060428
  Receipt Date: 20060419
  Transmission Date: 20061013
  Serious: Yes (Hospitalization)
  Sender: FDA-Public Use
  Company Number: 2006-140386-NL

PATIENT
  Age: 59 Year
  Sex: Female

DRUGS (7)
  1. MIRTAZAPINE [Suspect]
     Indication: SCHIZOAFFECTIVE DISORDER
     Dosage: DF
  2. PRAMIPEXOLE DIHYDROCHLORIDE [Suspect]
     Indication: RESTLESS LEGS SYNDROME
  3. OLANZAPINE [Suspect]
     Indication: SCHIZOAFFECTIVE DISORDER
  4. FLUOXETINE [Suspect]
     Indication: SCHIZOAFFECTIVE DISORDER
  5. PINDOLOL [Suspect]
     Indication: SCHIZOAFFECTIVE DISORDER
  6. PRAZEPAM [Suspect]
     Indication: SCHIZOAFFECTIVE DISORDER
  7. VALPROATE SODIUM [Suspect]
     Indication: SCHIZOAFFECTIVE DISORDER

REACTIONS (7)
  - ANXIETY [None]
  - CHILLS [None]
  - DEPRESSION [None]
  - GENERAL PHYSICAL HEALTH DETERIORATION [None]
  - HYPOKINESIA [None]
  - PLEUROTHOTONUS [None]
  - RESTLESS LEGS SYNDROME [None]
